FAERS Safety Report 9275472 (Version 1)
Quarter: 2013Q2

REPORT INFORMATION
  Report Type: Spontaneous
  Country: US (occurrence: US)
  Receive Date: 20130507
  Receipt Date: 20130507
  Transmission Date: 20140414
  Serious: No
  Sender: FDA-Public Use
  Company Number: US-PFIZER INC-2013136903

PATIENT
  Sex: Male

DRUGS (1)
  1. INLYTA [Suspect]
     Dosage: UNK
     Dates: end: 201304

REACTIONS (2)
  - Impaired healing [Unknown]
  - Infection [Unknown]
